FAERS Safety Report 7777443-1 (Version None)
Quarter: 2011Q3

REPORT INFORMATION
  Report Type: 
  Country: None (occurrence: None)
  Receive Date: 20110922
  Receipt Date: 20110909
  Transmission Date: 20111222
  Serious: Yes (Hospitalization, Other)
  Sender: FDA-Public Use
  Company Number: 2011SP043326

PATIENT
  Age: 63 Year
  Sex: Male

DRUGS (7)
  1. COZAAR [Concomitant]
  2. CRESTOR [Concomitant]
  3. CLARITIN [Suspect]
     Indication: HYPERSENSITIVITY
     Dosage: PO
     Route: 048
     Dates: start: 20110101, end: 20110907
  4. ASPIRIN [Concomitant]
  5. HYDROCODONE BITARTRATE [Concomitant]
  6. METOPROLOL TARTRATE [Concomitant]
  7. PLAVIX [Concomitant]

REACTIONS (2)
  - BLOOD PRESSURE INCREASED [None]
  - DRUG INTERACTION [None]
